FAERS Safety Report 16113636 (Version 2)
Quarter: 2021Q2

REPORT INFORMATION
  Report Type: Spontaneous
  Country: US (occurrence: US)
  Receive Date: 20190325
  Receipt Date: 20210413
  Transmission Date: 20210716
  Serious: No
  Sender: FDA-Public Use
  Company Number: US-ALLERGAN-1847716US

PATIENT
  Age: 63 Year
  Sex: Female
  Weight: 54.42 kg

DRUGS (7)
  1. COMBIGAN [Concomitant]
     Active Substance: BRIMONIDINE TARTRATE\TIMOLOL MALEATE
     Indication: GLAUCOMA
     Dosage: 2 GTT, BID
     Route: 047
     Dates: start: 20180822, end: 20180824
  2. ALLEGRA [Concomitant]
     Active Substance: FEXOFENADINE HYDROCHLORIDE
     Indication: SEASONAL ALLERGY
     Dosage: UNK
     Route: 048
  3. TRAVATAN Z [Concomitant]
     Active Substance: TRAVOPROST
     Indication: GLAUCOMA
     Dosage: UNK UNK, QD
     Route: 047
     Dates: start: 20180724, end: 20180808
  4. LUMIGAN [Suspect]
     Active Substance: BIMATOPROST
     Indication: GLAUCOMA
     Dosage: 2 GTT, QHS
     Route: 047
     Dates: start: 201708, end: 20180705
  5. LOPRESSOR [Concomitant]
     Active Substance: METOPROLOL TARTRATE
     Indication: MITRAL VALVE PROLAPSE
     Dosage: 50 MG, BID
     Route: 048
  6. EYELINER [Concomitant]
     Dosage: UNK
     Route: 065
  7. ZYRTEC [Concomitant]
     Active Substance: CETIRIZINE HYDROCHLORIDE
     Indication: SEASONAL ALLERGY
     Dosage: UNK
     Route: 048

REACTIONS (22)
  - Skin exfoliation [Recovered/Resolved]
  - Intraocular pressure increased [Recovered/Resolved]
  - Glossodynia [Not Recovered/Not Resolved]
  - Eyelid injury [Recovered/Resolved]
  - Eyelids pruritus [Recovered/Resolved]
  - Hypersensitivity [Not Recovered/Not Resolved]
  - Erythema of eyelid [Recovered/Resolved]
  - Dark circles under eyes [Unknown]
  - Pharyngeal inflammation [Recovered/Resolved]
  - Growth of eyelashes [Unknown]
  - Tongue erythema [Recovered/Resolved]
  - Glossitis [Recovered/Resolved]
  - Eye irritation [Recovered/Resolved]
  - Superficial injury of eye [Recovered/Resolved]
  - Pharyngeal erythema [Recovered/Resolved]
  - Blepharitis [Recovered/Resolved]
  - Eyelid irritation [Recovered/Resolved]
  - Iris hyperpigmentation [Recovered/Resolved]
  - Swollen tongue [Not Recovered/Not Resolved]
  - Hypertrophy of tongue papillae [Not Recovered/Not Resolved]
  - Swelling of eyelid [Unknown]
  - Ocular hyperaemia [Recovered/Resolved]

NARRATIVE: CASE EVENT DATE: 2017
